FAERS Safety Report 5104532-2 (Version None)
Quarter: 2006Q3

REPORT INFORMATION
  Report Type: 
  Country: None (occurrence: None)
  Receive Date: 20060908
  Receipt Date: 20060908
  Transmission Date: 20061208
  Serious: Yes (Life-Threatening, Hospitalization, Other)
  Sender: FDA-Public Use
  Company Number: None

PATIENT
  Age: 55 Year
  Sex: Male
  Weight: 111.1313 kg

DRUGS (2)
  1. SEROQUEL [Suspect]
     Indication: SLEEP DISORDER
     Dosage: 1 PER DAY DAILY IV DRIP
     Route: 041
     Dates: start: 20030822, end: 20031008
  2. HALDOL [Suspect]
     Dosage: AS USED
     Dates: start: 20031008, end: 20031009

REACTIONS (8)
  - AMNESIA [None]
  - ARTHRALGIA [None]
  - ATRIAL FIBRILLATION [None]
  - BACK PAIN [None]
  - CEREBROVASCULAR ACCIDENT [None]
  - DYSPNOEA [None]
  - LOSS OF CONSCIOUSNESS [None]
  - SOMNOLENCE [None]
